FAERS Safety Report 7037125-0 (Version None)
Quarter: 2010Q4

REPORT INFORMATION
  Report Type: 
  Country: None (occurrence: None)
  Receive Date: 20101011
  Receipt Date: 20100927
  Transmission Date: 20110411
  Serious: Yes (Hospitalization)
  Sender: FDA-Public Use
  Company Number: US-ELI_LILLY_AND_COMPANY-US201003007639

PATIENT
  Sex: Female

DRUGS (11)
  1. FORTEO [Suspect]
     Indication: OSTEOPOROSIS
     Dosage: 20 UG, DAILY (1/D)
  2. FORTEO [Suspect]
     Dosage: 20 UG, DAILY (1/D)
  3. FORTEO [Suspect]
     Dosage: 20 UG, DAILY (1/D)
  4. SYNTHROID [Concomitant]
     Dosage: 100 UG, DAILY (1/D)
  5. FELODIPINE [Concomitant]
     Dosage: 10 MG, EACH EVENING
  6. CALCIUM W/MAGNESIUM/VITAMIN D [Concomitant]
     Dosage: 1000 MG, 2/D
  7. ASCORBIC ACID [Concomitant]
     Dosage: 1000 MG, 3/D
  8. MULTI-VITAMIN [Concomitant]
     Dosage: UNK, DAILY (1/D)
  9. NEURONTIN [Concomitant]
     Dosage: 300 MG, TWO IN THE MORNING, ONE AT NOON, AND TWO AT BEDTIME
     Route: 048
  10. PHAZYME /00164001/ [Concomitant]
     Dosage: 100 MG, DAILY (1/D)
  11. PHAZYME /00164001/ [Concomitant]
     Dosage: UNK, AS NEEDED

REACTIONS (8)
  - ABDOMINAL DISCOMFORT [None]
  - BASAL CELL CARCINOMA [None]
  - CATARACT [None]
  - DIVERTICULITIS [None]
  - MEMORY IMPAIRMENT [None]
  - ROAD TRAFFIC ACCIDENT [None]
  - SKIN LESION [None]
  - STRESS [None]
